FAERS Safety Report 23785098 (Version 1)
Quarter: 2024Q2

REPORT INFORMATION
  Report Type: Spontaneous
  Country: US (occurrence: None)
  Receive Date: 20240425
  Receipt Date: 20240425
  Transmission Date: 20240716
  Serious: Yes (Life-Threatening, Hospitalization, Disabling)
  Sender: FDA-Public Use
  Company Number: None

PATIENT
  Age: 65 Year
  Sex: Female
  Weight: 109.8 kg

DRUGS (2)
  1. IBRUTINIB [Suspect]
     Active Substance: IBRUTINIB
     Indication: Chronic lymphocytic leukaemia
     Dosage: FREQUENCY : DAILY;?
     Route: 048
     Dates: start: 20191118, end: 20220501
  2. RITUXAN [Suspect]
     Active Substance: RITUXIMAB
     Dates: start: 20191118, end: 20200515

REACTIONS (2)
  - Acute hepatic failure [Unknown]
  - Liver transplant [None]

NARRATIVE: CASE EVENT DATE: 20220501
